FAERS Safety Report 16107144 (Version 1)
Quarter: 2019Q1

REPORT INFORMATION
  Report Type: Spontaneous
  Country: None (occurrence: JP)
  Receive Date: 20190322
  Receipt Date: 20190322
  Transmission Date: 20190418
  Serious: Yes (Other)
  Sender: FDA-Public Use
  Company Number: JP-LABORATOIRE HRA PHARMA-2064428

PATIENT
  Age: 68 Year
  Sex: Male

DRUGS (1)
  1. METOPIRONE [Suspect]
     Active Substance: METYRAPONE
     Indication: PITUITARY-DEPENDENT CUSHING^S SYNDROME

REACTIONS (1)
  - Hepatic function abnormal [Unknown]
